FAERS Safety Report 19005361 (Version 1)
Quarter: 2021Q1

REPORT INFORMATION
  Report Type: Spontaneous
  Country: US (occurrence: US)
  Receive Date: 20210313
  Receipt Date: 20210313
  Transmission Date: 20210420
  Serious: Yes (Other)
  Sender: FDA-Public Use
  Company Number: US-JNJFOC-20190816585

PATIENT
  Sex: Female
  Weight: 56.75 kg

DRUGS (1)
  1. IMODIUM MULTI?SYMPTOM RELIEF [Suspect]
     Active Substance: DIMETHICONE\LOPERAMIDE HYDROCHLORIDE
     Indication: DIARRHOEA
     Dosage: ONE CAPLET TWICE
     Route: 048

REACTIONS (2)
  - Choking [Recovered/Resolved]
  - Product solubility abnormal [Unknown]
